FAERS Safety Report 16478436 (Version 1)
Quarter: 2019Q2

REPORT INFORMATION
  Report Type: Spontaneous
  Country: GB (occurrence: GB)
  Receive Date: 20190626
  Receipt Date: 20190626
  Transmission Date: 20190711
  Serious: Yes (Hospitalization)
  Sender: FDA-Public Use
  Company Number: GB-PFIZER INC-2019267959

PATIENT
  Age: 52 Year
  Sex: Male

DRUGS (5)
  1. SERTRALINE HCL [Suspect]
     Active Substance: SERTRALINE HYDROCHLORIDE
     Indication: ANXIETY
     Dosage: 200 MG, UNK
     Route: 048
     Dates: end: 20190510
  2. VITAMIN B COMPOUND [NICOTINAMIDE;RIBOFLAVIN;THIAMINE HYDROCHLORIDE] [Concomitant]
     Dosage: UNK
  3. DIAZEPAM. [Concomitant]
     Active Substance: DIAZEPAM
     Dosage: 4 MG, 1X/DAY
  4. THIAMINE. [Concomitant]
     Active Substance: THIAMINE
     Dosage: 200 MG, 1X/DAY
  5. SALBUTAMOL [Concomitant]
     Active Substance: ALBUTEROL
     Dosage: 800 MG, 1X/DAY

REACTIONS (2)
  - Cerebral haemorrhage [Recovering/Resolving]
  - Hemiplegia [Recovering/Resolving]

NARRATIVE: CASE EVENT DATE: 20190403
